FAERS Safety Report 8464251-1 (Version None)
Quarter: 2012Q2

REPORT INFORMATION
  Report Type: 
  Country: None (occurrence: None)
  Receive Date: 20120625
  Receipt Date: 20120619
  Transmission Date: 20120825
  Serious: Yes (Death, Life-Threatening, Hospitalization)
  Sender: FDA-Public Use
  Company Number: FR-PFIZER INC-2012146846

PATIENT
  Age: 10 Day
  Sex: Male
  Weight: 3.145 kg

DRUGS (10)
  1. FOSPHENYTOIN SODIUM [Suspect]
     Indication: STATUS EPILEPTICUS
     Dosage: 15 MG/KG, UNK
     Dates: start: 20120316
  2. VITAMIN B6 [Concomitant]
     Dosage: UNK
     Dates: start: 20120316, end: 20120101
  3. FOSPHENYTOIN SODIUM [Suspect]
     Dosage: 5 MG/KG, UNK
     Dates: start: 20120317, end: 20120101
  4. CLONAZEPAM [Suspect]
     Indication: STATUS EPILEPTICUS
     Dosage: 0.1 MG/KG, UNK
     Dates: start: 20120316, end: 20120101
  5. KEPPRA [Suspect]
     Indication: STATUS EPILEPTICUS
     Dosage: 30 MG, UNK
     Dates: start: 20120317
  6. PHENOBARBITAL TAB [Suspect]
     Indication: STATUS EPILEPTICUS
     Dosage: 20 MG/KG, UNK
     Dates: start: 20120316, end: 20120101
  7. MIDAZOLAM HCL [Suspect]
     Indication: ANAESTHESIA
     Dosage: 30 A?G/KG/HOUR
     Dates: start: 20120316, end: 20120101
  8. PHENOBARBITAL TAB [Suspect]
     Dosage: 10 MG/KG, UNK
     Dates: end: 20120101
  9. SUFENTANIL CITRATE [Suspect]
     Indication: ANAESTHESIA
     Dosage: 0.2 A?G/L
     Dates: start: 20120316, end: 20120101
  10. KEPPRA [Suspect]
     Dosage: 60 MG, UNK
     Dates: end: 20120401

REACTIONS (1)
  - INTESTINAL ISCHAEMIA [None]
